FAERS Safety Report 10151967 (Version 1)
Quarter: 2014Q2

REPORT INFORMATION
  Report Type: Report from Study
  Country: CA (occurrence: CA)
  Receive Date: 20140505
  Receipt Date: 20140505
  Transmission Date: 20141212
  Serious: Yes (Hospitalization)
  Sender: FDA-Public Use
  Company Number: CA-JNJFOC-20140416506

PATIENT
  Age: 19 Year
  Sex: Male

DRUGS (1)
  1. STELARA [Suspect]
     Indication: PSORIASIS
     Route: 058
     Dates: start: 20130812

REACTIONS (4)
  - Gallbladder operation [Unknown]
  - Headache [Recovering/Resolving]
  - Confusional state [Recovered/Resolved]
  - Coma [Recovering/Resolving]
